FAERS Safety Report 8179852-8 (Version None)
Quarter: 2012Q1

REPORT INFORMATION
  Report Type: 
  Country: None (occurrence: None)
  Receive Date: 20120229
  Receipt Date: 20110627
  Transmission Date: 20120608
  Serious: Yes (Death)
  Sender: FDA-Public Use
  Company Number: UTC-015426

PATIENT
  Age: 70 Year
  Sex: Male

DRUGS (11)
  1. TRACLEER [Concomitant]
  2. IFEREX 150 (POLYSACCHARIDE-IRON COMPLEX) [Concomitant]
  3. GLIPIZIDE [Concomitant]
  4. PREDNISOLONE [Concomitant]
  5. ASPIR-81 (ACETYLSALICYLIC ACID) [Concomitant]
  6. TYVASO [Suspect]
     Indication: PULMONARY ARTERIAL HYPERTENSION
     Dosage: 216 MCG (54 MCG, 4 IN 1 D), INHALATION
     Route: 055
     Dates: start: 20110315
  7. FUROSEMIDE [Concomitant]
  8. VITAMIN D [Concomitant]
  9. SIMVASTATIN [Concomitant]
  10. METFORMIN HCL [Concomitant]
  11. HYDROXYCHLOROQUINE SULFATE [Concomitant]

REACTIONS (1)
  - DEATH [None]
